FAERS Safety Report 14894158 (Version 1)
Quarter: 2018Q2

REPORT INFORMATION
  Report Type: Report from Study
  Country: None (occurrence: US)
  Receive Date: 20180514
  Receipt Date: 20180514
  Transmission Date: 20180711
  Serious: Yes (Hospitalization)
  Sender: FDA-Public Use
  Company Number: US-ABBVIE-18P-163-2353475-00

PATIENT
  Sex: Female

DRUGS (1)
  1. MARINOL [Suspect]
     Active Substance: DRONABINOL
     Indication: PRODUCT USED FOR UNKNOWN INDICATION
     Dosage: 2.5 MG CAPSULE TWICE A DAY
     Route: 048

REACTIONS (2)
  - Hip fracture [Unknown]
  - Hand fracture [Unknown]
